FAERS Safety Report 7008475-9 (Version None)
Quarter: 2010Q3

REPORT INFORMATION
  Report Type: 
  Country: None (occurrence: None)
  Receive Date: 20100922
  Receipt Date: 20100914
  Transmission Date: 20110219
  Serious: Yes (Hospitalization, Other)
  Sender: FDA-Public Use
  Company Number: US-ABBOTT-10P-163-0665131-00

PATIENT
  Weight: 83.99 kg

DRUGS (6)
  1. NIASPAN [Suspect]
     Indication: BLOOD CHOLESTEROL INCREASED
     Route: 048
     Dates: start: 20090201, end: 20100806
  2. ATENOLOL [Concomitant]
     Indication: PRODUCT USED FOR UNKNOWN INDICATION
  3. PRAVASTATIN [Concomitant]
     Indication: PRODUCT USED FOR UNKNOWN INDICATION
     Route: 048
  4. ASPIRIN [Concomitant]
     Indication: PRODUCT USED FOR UNKNOWN INDICATION
     Route: 048
  5. MECLIZINE [Concomitant]
     Indication: DIZZINESS
     Route: 048
  6. NITROGLYCERIN [Concomitant]
     Indication: CHEST PAIN
     Route: 060

REACTIONS (15)
  - BLOOD PRESSURE DECREASED [None]
  - CONTUSION [None]
  - CONVULSION [None]
  - DIZZINESS [None]
  - FALL [None]
  - FATIGUE [None]
  - FEELING COLD [None]
  - GAIT DISTURBANCE [None]
  - HYPOAESTHESIA [None]
  - JOINT SPRAIN [None]
  - MUSCLE STRAIN [None]
  - MUSCULAR WEAKNESS [None]
  - OEDEMA PERIPHERAL [None]
  - TEMPERATURE INTOLERANCE [None]
  - YELLOW SKIN [None]
